FAERS Safety Report 17042340 (Version 1)
Quarter: 2019Q4

REPORT INFORMATION
  Report Type: Report from Study
  Country: US (occurrence: US)
  Receive Date: 20191118
  Receipt Date: 20191118
  Transmission Date: 20200122
  Serious: Yes (Other)
  Sender: FDA-Public Use
  Company Number: US-AMGEN-USASL2019188264

PATIENT
  Sex: Male

DRUGS (3)
  1. SENSIPAR [Suspect]
     Active Substance: CINACALCET HYDROCHLORIDE
     Indication: PRODUCT USED FOR UNKNOWN INDICATION
     Dosage: UNK
     Route: 065
  2. PARSABIV [Suspect]
     Active Substance: ETELCALCETIDE HYDROCHLORIDE
     Indication: CHRONIC KIDNEY DISEASE
     Dosage: 5 MILLIGRAM, QWK
     Route: 065
  3. PARSABIV [Suspect]
     Active Substance: ETELCALCETIDE HYDROCHLORIDE
     Indication: HYPERPARATHYROIDISM SECONDARY
     Dosage: 2.5 MILLIGRAM, QWK
     Route: 065
     Dates: start: 201808

REACTIONS (8)
  - Hypertension [Unknown]
  - Nausea [Unknown]
  - Hallucination [Unknown]
  - Hypoaesthesia [Unknown]
  - Abdominal pain [Unknown]
  - Discomfort [Unknown]
  - Asthenia [Unknown]
  - Underdose [Unknown]
